FAERS Safety Report 4965588-0 (Version None)
Quarter: 2006Q1

REPORT INFORMATION
  Report Type: 
  Country: None (occurrence: None)
  Receive Date: 20060201
  Receipt Date: 20051013
  Transmission Date: 20060701
  Serious: No
  Sender: FDA-Public Use
  Company Number: 2005PV003195

PATIENT
  Age: 59 Year
  Sex: Female
  Weight: 108.8633 kg

DRUGS (10)
  1. BYETTA [Suspect]
     Indication: DIABETES MELLITUS NON-INSULIN-DEPENDENT
     Dosage: 5  MCG; BID; SC
     Route: 058
     Dates: start: 20051008
  2. GLUCOTROL [Concomitant]
  3. ACTOS [Concomitant]
  4. ALTACE [Concomitant]
  5. METFORMIN [Concomitant]
  6. HYDROCHLOROTHIAZIDE [Concomitant]
  7. METHYLDOPA [Concomitant]
  8. KLOR-CON [Concomitant]
  9. ASPIRIN [Concomitant]
  10. EXTRA STRENGTH TYLENOL [Concomitant]

REACTIONS (1)
  - ARTHRALGIA [None]
